FAERS Safety Report 11022858 (Version 3)
Quarter: 2015Q2

REPORT INFORMATION
  Report Type: Spontaneous
  Country: US (occurrence: US)
  Receive Date: 20150413
  Receipt Date: 20150526
  Transmission Date: 20150821
  Serious: No
  Sender: FDA-Public Use
  Company Number: US-GLAXOSMITHKLINE-US2015048528

PATIENT
  Age: 65 Year
  Sex: Female

DRUGS (9)
  1. VITAMIN B3 [Concomitant]
     Active Substance: NIACIN
  2. PREDNISONE. [Suspect]
     Active Substance: PREDNISONE
     Indication: WHEEZING
     Dosage: UNK, 1D
     Route: 048
     Dates: start: 20150406
  3. KLONOPIN [Concomitant]
     Active Substance: CLONAZEPAM
  4. BREO ELLIPTA [Suspect]
     Active Substance: FLUTICASONE FUROATE\VILANTEROL TRIFENATATE
     Indication: CHRONIC OBSTRUCTIVE PULMONARY DISEASE
     Dosage: 1 PUFF(S), 1D
     Route: 055
     Dates: start: 20150404, end: 20150410
  5. SPIRIVA [Concomitant]
     Active Substance: TIOTROPIUM BROMIDE MONOHYDRATE
  6. PROTONIX [Concomitant]
     Active Substance: PANTOPRAZOLE SODIUM
  7. ALBUTEROL. [Suspect]
     Active Substance: ALBUTEROL
     Indication: PRODUCT USED FOR UNKNOWN INDICATION
     Dosage: UNK
  8. BREO ELLIPTA [Suspect]
     Active Substance: FLUTICASONE FUROATE\VILANTEROL TRIFENATATE
     Dosage: 1 PUFF(S), 1D
     Route: 055
     Dates: start: 20150414
  9. ADVAIR DISKUS [Suspect]
     Active Substance: FLUTICASONE PROPIONATE\SALMETEROL XINAFOATE
     Indication: CHRONIC OBSTRUCTIVE PULMONARY DISEASE
     Dosage: UNK, U
     Route: 065
     Dates: end: 20150410

REACTIONS (9)
  - Pigmentation lip [Not Recovered/Not Resolved]
  - Stomatitis [Unknown]
  - Drug hypersensitivity [Unknown]
  - Drug effect decreased [Unknown]
  - Dyspnoea [Not Recovered/Not Resolved]
  - Oral mucosal blistering [Not Recovered/Not Resolved]
  - Wheezing [Not Recovered/Not Resolved]
  - Labelled drug-drug interaction medication error [Unknown]
  - Medication error [Unknown]

NARRATIVE: CASE EVENT DATE: 201504
